FAERS Safety Report 8516975-5 (Version None)
Quarter: 2012Q3

REPORT INFORMATION
  Report Type: 
  Country: None (occurrence: None)
  Receive Date: 20120718
  Receipt Date: 20120716
  Transmission Date: 20120928
  Serious: Yes (Hospitalization)
  Sender: FDA-Public Use
  Company Number: US-PFIZER INC-2012171944

PATIENT
  Sex: Male
  Weight: 93 kg

DRUGS (4)
  1. METOPROLOL [Concomitant]
     Dosage: 25 MG, UNK
  2. NORVASC [Suspect]
     Dosage: UNK
     Route: 048
  3. NORVASC [Suspect]
     Indication: CARDIAC DISORDER
     Dosage: 10 MG, 1X/DAY
     Route: 048
  4. PROTONIX [Concomitant]
     Dosage: 40 MG, UNK

REACTIONS (1)
  - CORONARY ARTERY STENOSIS [None]
